FAERS Safety Report 7394491-4 (Version None)
Quarter: 2011Q2

REPORT INFORMATION
  Report Type: 
  Country: None (occurrence: None)
  Receive Date: 20110405
  Receipt Date: 20110324
  Transmission Date: 20111010
  Serious: Yes (Other)
  Sender: FDA-Public Use
  Company Number: PHHY2011BE24118

PATIENT
  Age: 17 Year
  Sex: Male

DRUGS (2)
  1. TRILEPTAL [Suspect]
     Indication: EPILEPSY
     Dosage: UNK UKN, UNK
  2. TRILEPTAL [Suspect]
     Dosage: 150 MG, QD

REACTIONS (1)
  - PSYCHOTIC DISORDER [None]
